FAERS Safety Report 12958200 (Version 1)
Quarter: 2016Q4

REPORT INFORMATION
  Report Type: Spontaneous
  Country: FI (occurrence: FI)
  Receive Date: 20161120
  Receipt Date: 20161120
  Transmission Date: 20170207
  Serious: Yes (Hospitalization, Other)
  Sender: FDA-Public Use
  Company Number: FI-ROCHE-1854579

PATIENT
  Age: 60 Year
  Sex: Female

DRUGS (11)
  1. NPLATE [Concomitant]
     Active Substance: ROMIPLOSTIM
     Route: 065
     Dates: start: 20131128
  2. BENDAMUSTINE [Concomitant]
     Active Substance: BENDAMUSTINE
     Route: 065
     Dates: start: 20160916
  3. MABTHERA [Suspect]
     Active Substance: RITUXIMAB
     Indication: IMMUNE THROMBOCYTOPENIC PURPURA
     Dosage: IDIOPATHIC THROMBOCYTOPENIC PURPURA (ITP)
     Route: 042
     Dates: start: 20110628, end: 20110719
  4. BENDAMUSTINE [Concomitant]
     Active Substance: BENDAMUSTINE
     Indication: EXTRANODAL MARGINAL ZONE B-CELL LYMPHOMA (MALT TYPE)
     Route: 065
     Dates: start: 20160720
  5. MABTHERA [Suspect]
     Active Substance: RITUXIMAB
     Indication: EXTRANODAL MARGINAL ZONE B-CELL LYMPHOMA (MALT TYPE)
     Dosage: ITP
     Route: 042
     Dates: start: 20131008, end: 20131029
  6. MABTHERA [Suspect]
     Active Substance: RITUXIMAB
     Dosage: MALT LYMPHOMA, INTERUPTED
     Route: 042
     Dates: start: 20160914
  7. MABTHERA [Suspect]
     Active Substance: RITUXIMAB
     Dosage: MALT-LYMPHOMA
     Route: 042
     Dates: start: 20160721
  8. MABTHERA [Suspect]
     Active Substance: RITUXIMAB
     Dosage: MALT LYMPHOMA, INTERRUPTED
     Route: 042
     Dates: start: 20160817
  9. BENDAMUSTINE [Concomitant]
     Active Substance: BENDAMUSTINE
     Route: 065
     Dates: start: 20160721
  10. MABTHERA [Suspect]
     Active Substance: RITUXIMAB
     Dosage: MALT-LYMPHOMA
     Route: 042
     Dates: start: 20160720
  11. BENDAMUSTINE [Concomitant]
     Active Substance: BENDAMUSTINE
     Route: 065
     Dates: start: 20160915

REACTIONS (4)
  - Immune thrombocytopenic purpura [Unknown]
  - Hypersensitivity [Recovered/Resolved]
  - Off label use [Unknown]
  - Extranodal marginal zone B-cell lymphoma (MALT type) [Recovering/Resolving]

NARRATIVE: CASE EVENT DATE: 20110628
